FAERS Safety Report 13461824 (Version 1)
Quarter: 2017Q2

REPORT INFORMATION
  Report Type: Spontaneous
  Country: US (occurrence: US)
  Receive Date: 20170419
  Receipt Date: 20170419
  Transmission Date: 20170830
  Serious: Yes (Other)
  Sender: FDA-Public Use
  Company Number: None

PATIENT
  Age: 57 Year
  Sex: Female
  Weight: 69.01 kg

DRUGS (1)
  1. ENBREL [Suspect]
     Active Substance: ETANERCEPT
     Dosage: 50MG/ML TWICE WEEKLY SUBCUTANEOUS
     Route: 058
     Dates: start: 20160323, end: 201609

REACTIONS (2)
  - Breast cancer [None]
  - Treatment noncompliance [None]

NARRATIVE: CASE EVENT DATE: 20170322
